FAERS Safety Report 9451545 (Version 1)
Quarter: 2013Q3

REPORT INFORMATION
  Report Type: Spontaneous
  Country: JP (occurrence: JP)
  Receive Date: 20130811
  Receipt Date: 20130811
  Transmission Date: 20140515
  Serious: Yes (Hospitalization)
  Sender: FDA-Public Use
  Company Number: JP-MYLANLABS-2013S1016967

PATIENT
  Age: 46 Year
  Sex: Male

DRUGS (3)
  1. CLOZAPINE [Suspect]
     Indication: SCHIZOPHRENIA, PARANOID TYPE
     Dosage: GRADUALLY INCREASED TO 275 MG/DAY, 37 DAYS AFTER INITIATION
     Route: 065
  2. LITHIUM [Concomitant]
     Dosage: 600 MG/DAY
     Route: 065
  3. SENNOSIDE [Concomitant]
     Dosage: 12-24 MG/DAY
     Route: 065

REACTIONS (4)
  - Constipation [Recovered/Resolved]
  - Appendicitis [Recovered/Resolved]
  - Large intestine perforation [Recovered/Resolved]
  - Faecaloma [Recovered/Resolved]
